FAERS Safety Report 13022702 (Version 2)
Quarter: 2017Q1

REPORT INFORMATION
  Report Type: Report from Study
  Country: AT (occurrence: AT)
  Receive Date: 20161213
  Receipt Date: 20170206
  Transmission Date: 20170428
  Serious: Yes (Hospitalization)
  Sender: FDA-Public Use
  Company Number: AT-TEVA-718951ACC

PATIENT
  Age: 72 Year
  Sex: Male

DRUGS (2)
  1. TREANDA [Suspect]
     Active Substance: BENDAMUSTINE HYDROCHLORIDE
     Indication: MALIGNANT LYMPHOID NEOPLASM
     Dosage: 170 MG, CYCLIC (D1 D2)
     Route: 042
     Dates: start: 20160803
  2. RITUXIMAB [Suspect]
     Active Substance: RITUXIMAB
     Indication: MALIGNANT LYMPHOID NEOPLASM
     Dosage: 690 MG, CYCLIC (1 IN 4 WEEKS)
     Route: 042
     Dates: start: 20160802

REACTIONS (1)
  - Liver disorder [Recovered/Resolved with Sequelae]

NARRATIVE: CASE EVENT DATE: 20161123
